FAERS Safety Report 5763431-3 (Version None)
Quarter: 2008Q2

REPORT INFORMATION
  Report Type: 
  Country: None (occurrence: None)
  Receive Date: 20080604
  Receipt Date: 20080604
  Transmission Date: 20081010
  Serious: No
  Sender: FDA-Public Use
  Company Number: None

PATIENT
  Sex: Male
  Weight: 60.3284 kg

DRUGS (4)
  1. LACTULOSE [Suspect]
     Indication: CONSTIPATION
     Dosage: 1 TBSP BID PO
     Route: 048
     Dates: start: 20080408, end: 20080519
  2. ANUSOL [Concomitant]
  3. LORATADINE [Concomitant]
  4. TRAMADOL HCL [Concomitant]

REACTIONS (3)
  - CONSTIPATION [None]
  - DRUG INEFFECTIVE [None]
  - PHARMACEUTICAL PRODUCT COMPLAINT [None]
